FAERS Safety Report 19376125 (Version 2)
Quarter: 2021Q2

REPORT INFORMATION
  Report Type: Report from Study
  Country: None (occurrence: US)
  Receive Date: 20210605
  Receipt Date: 20210629
  Transmission Date: 20210717
  Serious: Yes (Hospitalization, Other)
  Sender: FDA-Public Use
  Company Number: US-ABBVIE-21K-163-3934785-00

PATIENT
  Sex: Female

DRUGS (4)
  1. SKYRIZI [Suspect]
     Active Substance: RISANKIZUMAB-RZAA
     Indication: PSORIASIS
     Route: 058
     Dates: start: 2020
  2. GABAPENTIN. [Concomitant]
     Active Substance: GABAPENTIN
     Indication: SWELLING
  3. HYDROXYZINE [Concomitant]
     Active Substance: HYDROXYZINE HYDROCHLORIDE
     Indication: ANXIETY
  4. COVID?19 VACCINE [Concomitant]
     Indication: COVID-19 IMMUNISATION
     Route: 030
     Dates: start: 20210501, end: 20210501

REACTIONS (14)
  - Condition aggravated [Not Recovered/Not Resolved]
  - Pain [Not Recovered/Not Resolved]
  - Pain [Not Recovered/Not Resolved]
  - Osteoarthritis [Not Recovered/Not Resolved]
  - Gait disturbance [Not Recovered/Not Resolved]
  - Knee arthroplasty [Recovering/Resolving]
  - Migraine [Not Recovered/Not Resolved]
  - Knee arthroplasty [Recovering/Resolving]
  - Psoriasis [Not Recovered/Not Resolved]
  - COVID-19 [Recovering/Resolving]
  - Diabetes mellitus [Recovered/Resolved]
  - Swelling [Not Recovered/Not Resolved]
  - Swelling [Not Recovered/Not Resolved]
  - Complex regional pain syndrome [Not Recovered/Not Resolved]

NARRATIVE: CASE EVENT DATE: 2020
